FAERS Safety Report 5796746-3 (Version None)
Quarter: 2008Q3

REPORT INFORMATION
  Report Type: 
  Country: None (occurrence: None)
  Receive Date: 20080701
  Receipt Date: 20080625
  Transmission Date: 20090109
  Serious: Yes (Hospitalization)
  Sender: FDA-Public Use
  Company Number: US-MERCK-0806USA08612

PATIENT

DRUGS (1)
  1. INVANZ [Suspect]
     Route: 042

REACTIONS (1)
  - DEMENTIA [None]
